FAERS Safety Report 12695635 (Version 1)
Quarter: 2016Q3

REPORT INFORMATION
  Report Type: Spontaneous
  Country: US (occurrence: US)
  Receive Date: 20160829
  Receipt Date: 20160829
  Transmission Date: 20161109
  Serious: No
  Sender: FDA-Public Use
  Company Number: US-009507513-1607USA007640

PATIENT
  Sex: Female

DRUGS (1)
  1. NEXPLANON [Suspect]
     Active Substance: ETONOGESTREL
     Indication: CONTRACEPTION
     Dosage: UNK, UNKNOWN
     Route: 059
     Dates: start: 20160712

REACTIONS (4)
  - Device expulsion [Unknown]
  - Device difficult to use [Unknown]
  - No adverse event [Unknown]
  - Device deployment issue [Unknown]

NARRATIVE: CASE EVENT DATE: 20160712
